FAERS Safety Report 8309937-4 (Version None)
Quarter: 2012Q2

REPORT INFORMATION
  Report Type: 
  Country: None (occurrence: None)
  Receive Date: 20120425
  Receipt Date: 20120420
  Transmission Date: 20120825
  Serious: Yes (Disabling, Other)
  Sender: FDA-Public Use
  Company Number: US-PFIZER INC-2012098550

PATIENT
  Sex: Male
  Weight: 72.562 kg

DRUGS (5)
  1. LYRICA [Suspect]
     Indication: SCIATICA
     Dosage: 75 MG, 3X/DAY
     Dates: start: 20101001, end: 20120401
  2. LYRICA [Suspect]
     Indication: JOINT SWELLING
  3. LYRICA [Suspect]
     Indication: OEDEMA PERIPHERAL
  4. LYRICA [Suspect]
     Indication: FIBROMYALGIA
  5. OXYCODONE [Concomitant]
     Indication: PAIN
     Dosage: UNK

REACTIONS (10)
  - AGORAPHOBIA [None]
  - ANXIETY [None]
  - GAIT DISTURBANCE [None]
  - ALOPECIA [None]
  - DRUG INEFFECTIVE [None]
  - SCHIZOPHRENIA [None]
  - BACK PAIN [None]
  - PSYCHOTIC DISORDER [None]
  - PSORIATIC ARTHROPATHY [None]
  - OEDEMA PERIPHERAL [None]
